FAERS Safety Report 14604975 (Version 1)
Quarter: 2018Q1

REPORT INFORMATION
  Report Type: Spontaneous
  Country: US (occurrence: US)
  Receive Date: 20180306
  Receipt Date: 20180306
  Transmission Date: 20180509
  Serious: Yes (Disabling)
  Sender: FDA-Public Use
  Company Number: None

PATIENT
  Age: 66 Year
  Sex: Female
  Weight: 49.5 kg

DRUGS (11)
  1. CALCIUM [Concomitant]
     Active Substance: CALCIUM
  2. VITAMIN C [Concomitant]
     Active Substance: ASCORBIC ACID
  3. NIFEDIPINE ER 30MG TABLET [Suspect]
     Active Substance: NIFEDIPINE
     Indication: RAYNAUD^S PHENOMENON
     Dosage: ?          QUANTITY:1 TABLET(S);?
     Route: 048
     Dates: start: 20180215, end: 20180216
  4. DOXYCYCLINE. [Concomitant]
     Active Substance: DOXYCYCLINE
  5. IRON [Concomitant]
     Active Substance: IRON
  6. VIT B [Concomitant]
     Active Substance: VITAMIN B
  7. AVODART [Concomitant]
     Active Substance: DUTASTERIDE
  8. OMEGA 3 [Concomitant]
     Active Substance: OMEGA-3 FATTY ACIDS
  9. VITAMIN E [Concomitant]
     Active Substance: .ALPHA.-TOCOPHEROL
  10. MULTI VIT [Concomitant]
  11. VITAMIN D [Concomitant]
     Active Substance: CHOLECALCIFEROL

REACTIONS (2)
  - Throat tightness [None]
  - Pharyngeal oedema [None]

NARRATIVE: CASE EVENT DATE: 20180216
